FAERS Safety Report 7012187-5 (Version None)
Quarter: 2010Q3

REPORT INFORMATION
  Report Type: 
  Country: None (occurrence: None)
  Receive Date: 20100924
  Receipt Date: 20100915
  Transmission Date: 20110219
  Serious: Yes (Hospitalization)
  Sender: FDA-Public Use
  Company Number: KR-ASTRAZENECA-2010SE43272

PATIENT
  Age: 22971 Day
  Sex: Male

DRUGS (8)
  1. CRESTOR [Suspect]
     Indication: HYPERLIPIDAEMIA
     Route: 048
     Dates: start: 20050614
  2. ASPIRIN [Concomitant]
     Indication: ANGINA PECTORIS
     Dates: start: 20050614
  3. TENORMIN [Concomitant]
     Indication: ANGINA PECTORIS
     Dates: start: 20050614
  4. METFORMIN [Concomitant]
     Indication: DIABETES MELLITUS
  5. NATEGLINIDE [Concomitant]
     Indication: DIABETES MELLITUS
  6. SUCRALFATE [Concomitant]
  7. ACARBOSE [Concomitant]
     Indication: DIABETES MELLITUS
  8. INSULIN [Concomitant]
     Indication: DIABETES MELLITUS

REACTIONS (1)
  - SOFT TISSUE NECROSIS [None]
